FAERS Safety Report 9808473 (Version 2)
Quarter: 2014Q1

REPORT INFORMATION
  Report Type: Spontaneous
  Country: US (occurrence: US)
  Receive Date: 20140110
  Receipt Date: 20140110
  Transmission Date: 20141002
  Serious: No
  Sender: FDA-Public Use
  Company Number: US-GILEAD-2010-0027795

PATIENT
  Age: 45 Year
  Sex: Male
  Weight: 88 kg

DRUGS (11)
  1. VIREAD [Suspect]
     Indication: HIV INFECTION
  2. ISENTRESS [Concomitant]
     Indication: HIV INFECTION
  3. PREZISTA [Concomitant]
     Indication: HIV INFECTION
  4. NORVIR [Concomitant]
     Indication: HIV INFECTION
  5. INSULIN [Concomitant]
     Indication: DIABETES MELLITUS
  6. OMACOR [Concomitant]
  7. METFORMIN [Concomitant]
  8. TRICOR [Concomitant]
  9. LISINOPRIL [Concomitant]
  10. FLUCONAZOLE [Concomitant]
  11. BACTRIM [Concomitant]

REACTIONS (3)
  - Polycythaemia [Not Recovered/Not Resolved]
  - Erythema [Unknown]
  - Headache [Unknown]
